FAERS Safety Report 12094967 (Version 1)
Quarter: 2016Q1

REPORT INFORMATION
  Report Type: Spontaneous
  Country: DK (occurrence: DK)
  Receive Date: 20160219
  Receipt Date: 20160219
  Transmission Date: 20160526
  Serious: Yes (Death, Hospitalization, Other)
  Sender: FDA-Public Use
  Company Number: DK-ABBVIE-14P-044-1306536-00

PATIENT
  Sex: Male
  Weight: 85 kg

DRUGS (3)
  1. MAGNYL [Concomitant]
     Active Substance: ASPIRIN
     Indication: PRODUCT USED FOR UNKNOWN INDICATION
     Route: 065
  2. DUODOPA [Suspect]
     Active Substance: CARBIDOPA\LEVODOPA
     Indication: PARKINSON^S DISEASE
     Dosage: MD: 5 ML, ED: 1 ML
     Route: 050
     Dates: start: 20140602
  3. ENACODAN [Concomitant]
     Indication: PRODUCT USED FOR UNKNOWN INDICATION
     Route: 065

REACTIONS (11)
  - Gastrointestinal haemorrhage [Fatal]
  - Rectal haemorrhage [Unknown]
  - Haemoglobin decreased [Unknown]
  - Mouth haemorrhage [Unknown]
  - Gastrointestinal tract mucosal discolouration [Unknown]
  - Parkinson^s disease [Unknown]
  - Haemoglobin abnormal [Unknown]
  - Small intestinal haemorrhage [Unknown]
  - Duodenal ulcer [Unknown]
  - Haematemesis [Unknown]
  - Duodenal ulcer [Fatal]

NARRATIVE: CASE EVENT DATE: 201410
